FAERS Safety Report 25705655 (Version 1)
Quarter: 2025Q3

REPORT INFORMATION
  Report Type: Spontaneous
  Country: JP (occurrence: JP)
  Receive Date: 20250820
  Receipt Date: 20250820
  Transmission Date: 20251020
  Serious: Yes (Disabling)
  Sender: MYLAN
  Company Number: JP-MYLANLABS-2025M1069547

PATIENT
  Age: 37 Year
  Sex: Female

DRUGS (28)
  1. TAMOXIFEN [Suspect]
     Active Substance: TAMOXIFEN
     Indication: Breast cancer
     Dosage: 20 MILLIGRAM, QD
  2. TAMOXIFEN [Suspect]
     Active Substance: TAMOXIFEN
     Dosage: 20 MILLIGRAM, QD
     Route: 065
  3. TAMOXIFEN [Suspect]
     Active Substance: TAMOXIFEN
     Dosage: 20 MILLIGRAM, QD
     Route: 065
  4. TAMOXIFEN [Suspect]
     Active Substance: TAMOXIFEN
     Dosage: 20 MILLIGRAM, QD
  5. TRASTUZUMAB [Suspect]
     Active Substance: TRASTUZUMAB
     Indication: Breast cancer
  6. TRASTUZUMAB [Suspect]
     Active Substance: TRASTUZUMAB
  7. TRASTUZUMAB [Suspect]
     Active Substance: TRASTUZUMAB
     Route: 065
  8. TRASTUZUMAB [Suspect]
     Active Substance: TRASTUZUMAB
     Route: 065
  9. TRASTUZUMAB [Suspect]
     Active Substance: TRASTUZUMAB
  10. TRASTUZUMAB [Suspect]
     Active Substance: TRASTUZUMAB
  11. TRASTUZUMAB [Suspect]
     Active Substance: TRASTUZUMAB
     Route: 065
  12. TRASTUZUMAB [Suspect]
     Active Substance: TRASTUZUMAB
     Route: 065
  13. PERTUZUMAB [Suspect]
     Active Substance: PERTUZUMAB
     Indication: Breast cancer
  14. PERTUZUMAB [Suspect]
     Active Substance: PERTUZUMAB
  15. PERTUZUMAB [Suspect]
     Active Substance: PERTUZUMAB
     Route: 065
  16. PERTUZUMAB [Suspect]
     Active Substance: PERTUZUMAB
     Route: 065
  17. PERTUZUMAB [Suspect]
     Active Substance: PERTUZUMAB
  18. PERTUZUMAB [Suspect]
     Active Substance: PERTUZUMAB
  19. PERTUZUMAB [Suspect]
     Active Substance: PERTUZUMAB
     Route: 065
  20. PERTUZUMAB [Suspect]
     Active Substance: PERTUZUMAB
     Route: 065
  21. DOCETAXEL [Suspect]
     Active Substance: DOCETAXEL
     Indication: Breast cancer
  22. DOCETAXEL [Suspect]
     Active Substance: DOCETAXEL
     Route: 065
  23. DOCETAXEL [Suspect]
     Active Substance: DOCETAXEL
     Route: 065
  24. DOCETAXEL [Suspect]
     Active Substance: DOCETAXEL
  25. ADO-TRASTUZUMAB EMTANSINE [Suspect]
     Active Substance: ADO-TRASTUZUMAB EMTANSINE
     Indication: Breast cancer
  26. ADO-TRASTUZUMAB EMTANSINE [Suspect]
     Active Substance: ADO-TRASTUZUMAB EMTANSINE
     Route: 065
  27. ADO-TRASTUZUMAB EMTANSINE [Suspect]
     Active Substance: ADO-TRASTUZUMAB EMTANSINE
     Route: 065
  28. ADO-TRASTUZUMAB EMTANSINE [Suspect]
     Active Substance: ADO-TRASTUZUMAB EMTANSINE

REACTIONS (1)
  - Drug ineffective [Unknown]
